FAERS Safety Report 5168208-8 (Version None)
Quarter: 2006Q4

REPORT INFORMATION
  Report Type: 
  Country: None (occurrence: None)
  Receive Date: 20061130
  Receipt Date: 20020325
  Transmission Date: 20070319
  Serious: No
  Sender: FDA-Public Use
  Company Number: 23100346

PATIENT
  Age: 65 Year
  Sex: Female

DRUGS (7)
  1. ARGATROBAN [Suspect]
     Indication: HEPARIN-INDUCED THROMBOCYTOPENIA
     Dosage: 50 MG ONCE IV
     Route: 042
     Dates: start: 20020325
  2. ARGATROBAN [Suspect]
     Indication: HEPARIN-INDUCED THROMBOCYTOPENIA
     Dosage: 2 MCG/KG/MIN CONT IV
     Route: 042
     Dates: start: 20020313, end: 20020325
  3. EPOGEN [Concomitant]
  4. VERSED [Concomitant]
  5. IBUPROFEN [Concomitant]
  6. CEFEPIME [Concomitant]
  7. INSULIN [Concomitant]

REACTIONS (4)
  - ACTIVATED PARTIAL THROMBOPLASTIN TIME PROLONGED [None]
  - INTERNATIONAL NORMALISED RATIO INCREASED [None]
  - MEDICATION ERROR [None]
  - OVERDOSE [None]
